FAERS Safety Report 24300065 (Version 1)
Quarter: 2024Q3

REPORT INFORMATION
  Report Type: Spontaneous
  Country: US (occurrence: None)
  Receive Date: 20240909
  Receipt Date: 20240909
  Transmission Date: 20241017
  Serious: Yes (Other)
  Sender: Public
  Company Number: None

PATIENT
  Age: 69 Year
  Sex: Female
  Weight: 85.5 kg

DRUGS (8)
  1. RECLAST [Suspect]
     Active Substance: ZOLEDRONIC ACID
     Indication: Osteoporosis
     Dates: start: 20240828, end: 20240828
  2. HYDROCHLOROTHIAZIDE\LISINOPRIL [Concomitant]
     Active Substance: HYDROCHLOROTHIAZIDE\LISINOPRIL
  3. TIZANIDINE [Concomitant]
     Active Substance: TIZANIDINE
  4. LEXAPRO [Concomitant]
     Active Substance: ESCITALOPRAM OXALATE
  5. OXYBUTYNIN [Concomitant]
     Active Substance: OXYBUTYNIN\OXYBUTYNIN CHLORIDE
  6. VITAMINS [Concomitant]
     Active Substance: VITAMINS
  7. CHONDROITIN SULFATE (BOVINE)\GLUCOSAMINE SULFATE [Concomitant]
     Active Substance: CHONDROITIN SULFATE (BOVINE)\GLUCOSAMINE SULFATE
  8. CALCIUM\VITAMIN D [Concomitant]
     Active Substance: CALCIUM\VITAMIN D

REACTIONS (15)
  - Pyrexia [None]
  - Pain [None]
  - Muscle spasms [None]
  - Headache [None]
  - Nausea [None]
  - Pain in extremity [None]
  - Swelling [None]
  - Arthralgia [None]
  - Musculoskeletal disorder [None]
  - Gait disturbance [None]
  - Pain in extremity [None]
  - Muscle spasms [None]
  - Arthralgia [None]
  - Gout [None]
  - Chondrocalcinosis [None]

NARRATIVE: CASE EVENT DATE: 20240828
